FAERS Safety Report 7202824-4 (Version None)
Quarter: 2010Q4

REPORT INFORMATION
  Report Type: 
  Country: None (occurrence: None)
  Receive Date: 20101216
  Receipt Date: 20101129
  Transmission Date: 20110411
  Serious: Yes (Other)
  Sender: FDA-Public Use
  Company Number: 2010-4307

PATIENT
  Age: 56 Year
  Sex: Male

DRUGS (1)
  1. APO-GO AMPOULES (APO-GO) (APOMORPHINE HYDROCHLORIDE) (APOMORPHINE HYDR [Suspect]
     Indication: PRODUCT USED FOR UNKNOWN INDICATION
     Dosage: (CONTINUOUS FOR 24 HOURS), SUBCUTANEOUS
     Route: 058
     Dates: start: 20091115

REACTIONS (2)
  - CONVULSION [None]
  - HYPERKINESIA [None]
